FAERS Safety Report 20923002 (Version 2)
Quarter: 2025Q2

REPORT INFORMATION
  Report Type: Spontaneous
  Country: SI (occurrence: SI)
  Receive Date: 20220607
  Receipt Date: 20250623
  Transmission Date: 20250716
  Serious: Yes (Hospitalization, Disabling, Other)
  Sender: BRISTOL-MYERS SQUIBB COMPANY
  Company Number: SI-BRISTOL-MYERS SQUIBB COMPANY-2022-049078

PATIENT
  Age: 40 Year
  Sex: Male

DRUGS (4)
  1. OPDIVO [Suspect]
     Active Substance: NIVOLUMAB
     Indication: Clear cell renal cell carcinoma
  2. OPDIVO [Suspect]
     Active Substance: NIVOLUMAB
     Dates: start: 202103
  3. YERVOY [Suspect]
     Active Substance: IPILIMUMAB
     Indication: Clear cell renal cell carcinoma
  4. YERVOY [Suspect]
     Active Substance: IPILIMUMAB
     Dates: start: 202103

REACTIONS (19)
  - Pyrexia [Unknown]
  - Adrenal insufficiency [Unknown]
  - Polyneuropathy [Unknown]
  - Borrelia test positive [Recovering/Resolving]
  - Illness [Unknown]
  - Paraesthesia [Recovering/Resolving]
  - Immobile [Recovered/Resolved]
  - Areflexia [Unknown]
  - Muscular weakness [Unknown]
  - Sensory loss [Unknown]
  - Allodynia [Unknown]
  - Asthenia [Unknown]
  - Hyponatraemia [Unknown]
  - Inappropriate antidiuretic hormone secretion [Unknown]
  - Gait disturbance [Unknown]
  - Pain [Unknown]
  - Protein total increased [Unknown]
  - Lymphocytosis [Not Recovered/Not Resolved]
  - Pleocytosis [Unknown]

NARRATIVE: CASE EVENT DATE: 20210420
